FAERS Safety Report 21338598 (Version 2)
Quarter: 2022Q3

REPORT INFORMATION
  Report Type: Report from Study
  Country: CZ (occurrence: CZ)
  Receive Date: 20220915
  Receipt Date: 20220928
  Transmission Date: 20221027
  Serious: Yes (Other)
  Sender: FDA-Public Use
  Company Number: CZ-TEVA-2022-CZ-2072246

PATIENT
  Age: 19 Year
  Sex: Male

DRUGS (6)
  1. CLARITHROMYCIN [Suspect]
     Active Substance: CLARITHROMYCIN
     Indication: Mycobacterium abscessus infection
     Route: 048
  2. CIPROFLOXACIN [Suspect]
     Active Substance: CIPROFLOXACIN
     Indication: Mycobacterium abscessus infection
     Route: 048
  3. CLARITHROMYCIN [Suspect]
     Active Substance: CLARITHROMYCIN
     Indication: Mycobacterium abscessus infection
     Route: 042
  4. AMIKACIN [Concomitant]
     Active Substance: AMIKACIN
     Indication: Mycobacterium abscessus infection
     Route: 042
  5. IMIPENEM [Concomitant]
     Active Substance: IMIPENEM
     Indication: Mycobacterium abscessus infection
     Route: 042
  6. DOXYCYCLINE [Concomitant]
     Active Substance: DOXYCYCLINE
     Indication: Mycobacterium abscessus infection
     Route: 048

REACTIONS (2)
  - Pathogen resistance [Unknown]
  - Drug ineffective [Unknown]
